FAERS Safety Report 5733698-6 (Version None)
Quarter: 2008Q2

REPORT INFORMATION
  Report Type: 
  Country: None (occurrence: None)
  Receive Date: 20080509
  Receipt Date: 20080409
  Transmission Date: 20081010
  Serious: No
  Sender: FDA-Public Use
  Company Number: A0721904A

PATIENT
  Age: 67 Year
  Sex: Female

DRUGS (4)
  1. ALTABAX [Suspect]
     Indication: IMPETIGO
     Route: 061
     Dates: start: 20071119
  2. SEPTRA [Concomitant]
  3. BACTRIM DS [Concomitant]
  4. PREDNISONE TAB [Concomitant]

REACTIONS (2)
  - DRUG INEFFECTIVE [None]
  - PRURITUS [None]
